FAERS Safety Report 16227002 (Version 2)
Quarter: 2019Q2

REPORT INFORMATION
  Report Type: Spontaneous
  Country: US (occurrence: US)
  Receive Date: 20190423
  Receipt Date: 20190426
  Transmission Date: 20190711
  Serious: Yes (Other)
  Sender: FDA-Public Use
  Company Number: US-REGENERON PHARMACEUTICALS, INC.-2019-27615

PATIENT

DRUGS (1)
  1. EYLEA [Suspect]
     Active Substance: AFLIBERCEPT
     Indication: NEOVASCULAR AGE-RELATED MACULAR DEGENERATION
     Dosage: INITIALLY 3, 4, 5 WEEKS, THEN 6-8 WEEKS, THEN EVERY 6 WEEKS
     Route: 031

REACTIONS (4)
  - Drug ineffective [Unknown]
  - Depressed mood [Unknown]
  - Visual acuity reduced [Unknown]
  - Eye disorder [Unknown]
